FAERS Safety Report 7488258-6 (Version None)
Quarter: 2011Q2

REPORT INFORMATION
  Report Type: 
  Country: None (occurrence: None)
  Receive Date: 20110511
  Receipt Date: 20110426
  Transmission Date: 20111010
  Serious: Yes (Hospitalization)
  Sender: FDA-Public Use
  Company Number: 030917

PATIENT
  Sex: Female

DRUGS (13)
  1. BETAMETHASONE BUTYRATE PROPIONATE [Concomitant]
  2. CIMZIA [Suspect]
     Indication: RHEUMATOID ARTHRITIS
     Dosage: 400 MG 1X/2 WEEKS SUBCUTANEOUT; 200 MG 1X/2 WEEKS SUBCUTANEOUS; 400 MG 1X/4 WEEKS SUBCUTANEOUS
     Route: 058
     Dates: start: 20091106, end: 20101019
  3. CIMZIA [Suspect]
     Indication: RHEUMATOID ARTHRITIS
     Dosage: 400 MG 1X/2 WEEKS SUBCUTANEOUT; 200 MG 1X/2 WEEKS SUBCUTANEOUS; 400 MG 1X/4 WEEKS SUBCUTANEOUS
     Route: 058
     Dates: start: 20101102
  4. FOLIC ACID [Concomitant]
  5. CALCIPOTRIOL [Concomitant]
  6. LIRANAFTATE [Concomitant]
  7. MISIPROSTOL [Concomitant]
  8. LOXOPROFEN SODIUM [Concomitant]
  9. RHEUMATREX [Suspect]
     Indication: RHEUMATOID ARTHRITIS
     Dosage: 6 MG, 1X/WEEK ORAL; 6 MG 1X/WEEK ORAL
     Route: 048
     Dates: start: 20090129, end: 20110326
  10. RHEUMATREX [Suspect]
     Indication: RHEUMATOID ARTHRITIS
     Dosage: 6 MG, 1X/WEEK ORAL; 6 MG 1X/WEEK ORAL
     Route: 048
     Dates: start: 20090419
  11. OMEPRAZOLE [Concomitant]
  12. ALFACALCIDOL [Concomitant]
  13. PREDNISOLONE [Suspect]
     Indication: RHEUMATOID ARTHRITIS
     Dosage: 6 MG, ORAL
     Route: 048
     Dates: start: 20100714, end: 20110330

REACTIONS (9)
  - ENTEROCOLITIS [None]
  - HEPATIC STEATOSIS [None]
  - RENAL FAILURE [None]
  - DEPRESSED LEVEL OF CONSCIOUSNESS [None]
  - SEPTIC SHOCK [None]
  - DEHYDRATION [None]
  - HYPOVOLAEMIC SHOCK [None]
  - CHOLELITHIASIS [None]
  - NEPHROLITHIASIS [None]
